FAERS Safety Report 4841049-4 (Version None)
Quarter: 2005Q4

REPORT INFORMATION
  Report Type: 
  Country: None (occurrence: None)
  Receive Date: 20051130
  Receipt Date: 20050906
  Transmission Date: 20060501
  Serious: No
  Sender: FDA-Public Use
  Company Number: US-BRISTOL-MYERS SQUIBB COMPANY-13101514

PATIENT
  Age: 14 Year
  Sex: Male
  Weight: 107 kg

DRUGS (2)
  1. ABILIFY [Suspect]
     Dosage: ORINIGALLY PRESCRIBED ARIPIRAZOLE 5 MG IN DEC 2004
     Dates: start: 20041201
  2. TOPAMAX [Concomitant]

REACTIONS (6)
  - ASPERGER'S DISORDER [None]
  - FOOD CRAVING [None]
  - LIBIDO INCREASED [None]
  - LOW DENSITY LIPOPROTEIN INCREASED [None]
  - THIRST [None]
  - WEIGHT INCREASED [None]
